FAERS Safety Report 6710393-8 (Version None)
Quarter: 2010Q2

REPORT INFORMATION
  Report Type: 
  Country: None (occurrence: None)
  Receive Date: 20100504
  Receipt Date: 20100422
  Transmission Date: 20101027
  Serious: Yes (Other)
  Sender: FDA-Public Use
  Company Number: US-PFIZER INC-2010039102

PATIENT
  Sex: Female

DRUGS (16)
  1. LYRICA [Suspect]
     Indication: PAIN
     Dosage: 25 MG, 1X/DAY
     Route: 048
     Dates: start: 20100312
  2. LYRICA [Suspect]
     Indication: NECK PAIN
  3. LYRICA [Suspect]
     Indication: POST HERPETIC NEURALGIA
  4. NEURONTIN [Suspect]
     Dosage: UNK
  5. ARTHROTEC [Suspect]
     Dosage: UNK
  6. LEXAPRO [Suspect]
     Dosage: UNK
  7. ESTRACE [Concomitant]
     Dosage: UNK
  8. FEXOFENADINE [Concomitant]
     Dosage: UNK
  9. AVAPRO [Concomitant]
     Dosage: 300 MG, UNK
  10. AVAPRO [Concomitant]
  11. SYNTHROID [Concomitant]
     Dosage: 0.1 MG, 1X/DAY
  12. SYNTHROID [Concomitant]
  13. MORPHINE SULFATE [Concomitant]
     Dosage: UNK
  14. MS CONTIN [Concomitant]
     Dosage: 15 MG, 2X/DAY
  15. ESTRADIOL [Concomitant]
     Dosage: 1 MG, 1X/DAY
  16. ALLEGRA [Concomitant]
     Dosage: 180 MG, AS NEEDED

REACTIONS (9)
  - ABDOMINAL DISCOMFORT [None]
  - ANXIETY [None]
  - DIZZINESS [None]
  - HAEMATOCRIT INCREASED [None]
  - HAEMOGLOBIN INCREASED [None]
  - HOT FLUSH [None]
  - MEMORY IMPAIRMENT [None]
  - NAUSEA [None]
  - VISION BLURRED [None]
